FAERS Safety Report 7919872-9 (Version None)
Quarter: 2011Q4

REPORT INFORMATION
  Report Type: 
  Country: None (occurrence: None)
  Receive Date: 20111115
  Receipt Date: 20111031
  Transmission Date: 20120403
  Serious: Yes (Death)
  Sender: FDA-Public Use
  Company Number: 1000025398

PATIENT
  Age: 72 Year
  Sex: Female

DRUGS (11)
  1. FERRO DURETTER (FERRO DURETTER) (FERRO DURETTER) [Concomitant]
  2. ESCITALOPRAM [Suspect]
     Indication: SCHIZOAFFECTIVE DISORDER
     Dosage: 30 MG (30 MG, 1 IN 1 D), ORAL
     Route: 048
     Dates: end: 20111023
  3. FURIX (FURIX) (FURIX) [Concomitant]
  4. CENTYL MED KALIUMKLORID (SALURES-K) (SALURES-K) [Concomitant]
  5. AMLODIPIN ^ACTAVIS^ (AMLODIPINE BESILATE) (AMLODIPINE BESILATE) [Concomitant]
  6. TRUXAL TABLETTER (CHLORPROTHIXENE) [Suspect]
     Dates: start: 20111022
  7. ZELDOX (ZELDOX) (40 MILLIGRAM) [Suspect]
     Indication: SCHIZOAFFECTIVE DISORDER
     Dosage: 80 MG (40 MG, 2 IN 1 D), ORAL
     Route: 048
     Dates: end: 20111023
  8. FRAGMIN (DALTEPARIN SODIUM ) (DALTEPARIN SODIUM) [Concomitant]
  9. ALPRAZOLAM [Concomitant]
  10. LITAREX (LITAREX) (6 MILLIMOL) [Suspect]
     Indication: SCHIZOAFFECTIVE DISORDER
     Dosage: (6 MILLIMOL), ORAL
     Route: 048
     Dates: end: 20111023
  11. MIRTAZAPINE [Suspect]
     Dosage: 30 MG (30 MG, 1 IN 1 D), ORAL
     Route: 048
     Dates: end: 20111023

REACTIONS (5)
  - RHABDOMYOLYSIS [None]
  - NEUROLEPTIC MALIGNANT SYNDROME [None]
  - LACTIC ACIDOSIS [None]
  - RENAL FAILURE [None]
  - ORGAN FAILURE [None]
